FAERS Safety Report 8816777 (Version 2)
Quarter: 2012Q4

REPORT INFORMATION
  Report Type: Spontaneous
  Country: US (occurrence: None)
  Receive Date: 20121001
  Receipt Date: 20121009
  Transmission Date: 20130627
  Serious: Yes (Death)
  Sender: FDA-Public Use
  Company Number: UTC-023657

PATIENT
  Age: 80 Year
  Sex: Female
  Weight: 111.3 kg

DRUGS (1)
  1. REMODULIN [Suspect]
     Indication: PULMONARY ARTERIAL HYPERTENSION
     Dosage: 37.44 ug/kg (0.026 ug/kg, 1 in 1 min), Intravenous
     Route: 042
     Dates: start: 20120329

REACTIONS (2)
  - Cardiac failure [None]
  - Cardiac arrest [None]
